FAERS Safety Report 5606704-7 (Version None)
Quarter: 2008Q1

REPORT INFORMATION
  Report Type: 
  Country: None (occurrence: None)
  Receive Date: 20080129
  Receipt Date: 20080121
  Transmission Date: 20080703
  Serious: Yes (Hospitalization)
  Sender: FDA-Public Use
  Company Number: JP-ABBOTT-07P-087-0430642-00

PATIENT
  Age: 40 Year
  Sex: Female

DRUGS (1)
  1. KLARICID TABLETS [Suspect]
     Indication: NASOPHARYNGITIS
     Route: 048

REACTIONS (1)
  - APLASTIC ANAEMIA [None]
